FAERS Safety Report 4916084-8 (Version None)
Quarter: 2006Q1

REPORT INFORMATION
  Report Type: 
  Country: None (occurrence: None)
  Receive Date: 20060214
  Receipt Date: 20060202
  Transmission Date: 20060701
  Serious: Yes (Other)
  Sender: FDA-Public Use
  Company Number: 2005071885

PATIENT
  Age: 61 Year
  Sex: Male
  Weight: 77.1115 kg

DRUGS (3)
  1. QUINAPRIL HCL [Suspect]
     Indication: HYPERTENSION
     Dosage: SEE IMAGE
     Route: 048
  2. LIBRIUM [Suspect]
     Indication: ALCOHOL WITHDRAWAL SYNDROME
     Dosage: 1 TO 2 CAPSULES (4 IN 1 D)
  3. HYDROXYZINE [Suspect]
     Indication: ANXIETY
     Dosage: 100 MG (50 MG, 1 IN 1 D), ORAL
     Route: 048
     Dates: start: 20040101

REACTIONS (12)
  - ANOREXIA [None]
  - BLINDNESS [None]
  - CATARACT [None]
  - COUGH [None]
  - DIZZINESS [None]
  - FATIGUE [None]
  - HYPERTENSION [None]
  - LYME DISEASE [None]
  - MACULAR DEGENERATION [None]
  - SINUSITIS [None]
  - VISION BLURRED [None]
  - WEIGHT INCREASED [None]
